FAERS Safety Report 13952213 (Version 1)
Quarter: 2017Q3

REPORT INFORMATION
  Report Type: Spontaneous
  Country: US (occurrence: US)
  Receive Date: 20170911
  Receipt Date: 20170911
  Transmission Date: 20171128
  Serious: No
  Sender: FDA-Public Use
  Company Number: US-GLENMARK PHARMACEUTICALS-2016GMK024917

PATIENT

DRUGS (1)
  1. GABAPENTIN TABLETS [Suspect]
     Active Substance: GABAPENTIN
     Indication: PAIN
     Dosage: 600 MG, HS
     Route: 048

REACTIONS (1)
  - Drug ineffective for unapproved indication [Unknown]
